FAERS Safety Report 24238188 (Version 2)
Quarter: 2024Q3

REPORT INFORMATION
  Report Type: Other
  Country: US (occurrence: US)
  Receive Date: 20240822
  Receipt Date: 20240823
  Transmission Date: 20241016
  Serious: Yes (unspecified)
  Sender: RC OUTSOURCING, LLC, LOWELLVILLE, OH
  Company Number: US-RC Outsourcing, LLC-2159949

PATIENT
  Age: 64 Year
  Sex: Male

DRUGS (1)
  1. BEVACIZUMAB [Suspect]
     Active Substance: BEVACIZUMAB
     Route: 031
     Dates: start: 20240723

REACTIONS (1)
  - Endophthalmitis [Recovered/Resolved]

NARRATIVE: CASE EVENT DATE: 20240724
